FAERS Safety Report 9424572 (Version 1)
Quarter: 2013Q3

REPORT INFORMATION
  Report Type: Spontaneous
  Country: NL (occurrence: NL)
  Receive Date: 20130729
  Receipt Date: 20130729
  Transmission Date: 20140515
  Serious: Yes (Other)
  Sender: FDA-Public Use
  Company Number: NL-AMGEN-NLDSP2013052524

PATIENT
  Age: 63 Year
  Sex: Male

DRUGS (6)
  1. ENBREL [Suspect]
     Indication: RHEUMATOID ARTHRITIS
     Dosage: 50 MG, WEEKLY
     Route: 065
     Dates: start: 20130508
  2. METOPROLOL [Concomitant]
     Dosage: 50 MG, UNK
  3. CLOPIDOGREL [Concomitant]
     Dosage: UNK
  4. ATORVASTATIN [Concomitant]
     Dosage: 40 MG, UNK
  5. PANTOPRAZOL [Concomitant]
     Dosage: 20 MG, UNK
  6. HYDROCHLOROTHIAZIDE [Concomitant]
     Dosage: 12.5 UNK, UNK

REACTIONS (2)
  - Hypoxia [Unknown]
  - Hypertension [Unknown]
